FAERS Safety Report 13733791 (Version 2)
Quarter: 2017Q4

REPORT INFORMATION
  Report Type: Spontaneous
  Country: BR (occurrence: BR)
  Receive Date: 20170707
  Receipt Date: 20171005
  Transmission Date: 20180320
  Serious: Yes (Other)
  Sender: FDA-Public Use
  Company Number: BR-ABBVIE-17P-020-2031301-00

PATIENT
  Age: 50 Year
  Sex: Female

DRUGS (3)
  1. DEPAKOTE [Suspect]
     Active Substance: DIVALPROEX SODIUM
     Indication: EPILEPSY
     Route: 048
     Dates: start: 2017
  2. TOPIRAMATE. [Concomitant]
     Active Substance: TOPIRAMATE
     Indication: HEADACHE
     Route: 048
  3. DEPAKENE [Suspect]
     Active Substance: VALPROIC ACID
     Indication: EPILEPSY
     Dosage: 1 TABLET IN THE MORNING, 1 TABLET IN THE AFTERNOON AND 1 TABLET AT NIGHT.
     Route: 048
     Dates: start: 2014, end: 2017

REACTIONS (6)
  - Haemorrhage [Recovered/Resolved]
  - Chromaturia [Not Recovered/Not Resolved]
  - Hallucination, visual [Recovered/Resolved]
  - Circulatory collapse [Recovered/Resolved]
  - Blood pressure decreased [Not Recovered/Not Resolved]
  - Seizure [Not Recovered/Not Resolved]

NARRATIVE: CASE EVENT DATE: 20170628
